FAERS Safety Report 13980274 (Version 1)
Quarter: 2017Q3

REPORT INFORMATION
  Report Type: Spontaneous
  Country: NO (occurrence: NO)
  Receive Date: 20170917
  Receipt Date: 20170917
  Transmission Date: 20171128
  Serious: Yes (Other)
  Sender: FDA-Public Use
  Company Number: NO-MYLANLABS-2017M1057638

PATIENT
  Sex: Female

DRUGS (1)
  1. ATORVASTATIN MYLAN [Suspect]
     Active Substance: ATORVASTATIN
     Indication: PRODUCT USED FOR UNKNOWN INDICATION
     Dosage: UNK
     Route: 065

REACTIONS (9)
  - Vision blurred [Recovered/Resolved]
  - Muscle spasms [Recovering/Resolving]
  - Renal impairment [Not Recovered/Not Resolved]
  - Sleep disorder [Recovering/Resolving]
  - Feeling abnormal [Recovered/Resolved]
  - Joint swelling [Not Recovered/Not Resolved]
  - Breast enlargement [Not Recovered/Not Resolved]
  - Rhinorrhoea [Recovering/Resolving]
  - Myalgia [Recovering/Resolving]
